FAERS Safety Report 6052897-X (Version None)
Quarter: 2009Q1

REPORT INFORMATION
  Report Type: 
  Country: None (occurrence: None)
  Receive Date: 20090127
  Receipt Date: 20080903
  Transmission Date: 20090719
  Serious: No
  Sender: FDA-Public Use
  Company Number: US-ABBOTT-08P-163-0459927-00

PATIENT
  Sex: Male

DRUGS (1)
  1. LUPRON [Suspect]
     Indication: PROSTATE CANCER
     Route: 030
     Dates: start: 20071130

REACTIONS (1)
  - PROSTATIC SPECIFIC ANTIGEN INCREASED [None]
